FAERS Safety Report 5809095-1 (Version None)
Quarter: 2008Q3

REPORT INFORMATION
  Report Type: 
  Country: None (occurrence: None)
  Receive Date: 20080714
  Receipt Date: 20080708
  Transmission Date: 20090109
  Serious: Yes (Life-Threatening, Hospitalization, Other)
  Sender: FDA-Public Use
  Company Number: US-AVENTIS-200610952US

PATIENT
  Age: 53 Year
  Sex: Female
  Weight: 65.9 kg

DRUGS (9)
  1. KETEK [Suspect]
     Dates: start: 20060118, end: 20060122
  2. PROTONIX [Concomitant]
     Dosage: DOSE: UNK
  3. ASPIRIN [Concomitant]
     Dosage: DOSE: UNK
  4. THIAZIDE [Concomitant]
     Dosage: DOSE: UNJK
  5. PREMPRO [Concomitant]
     Dosage: DOSE: UNK
  6. NAPROXEN [Concomitant]
     Dosage: DOSE: UNK
  7. ASTELIN                            /00884002/ [Concomitant]
     Dosage: DOSE: UNK
     Dates: end: 20060129
  8. PATANOL [Concomitant]
     Dosage: DOSE: UNK
  9. NASONEX [Concomitant]
     Dosage: DOSE: UNK

REACTIONS (20)
  - ACUTE HEPATIC FAILURE [None]
  - ALANINE AMINOTRANSFERASE INCREASED [None]
  - ASPARTATE AMINOTRANSFERASE INCREASED [None]
  - ASTHENIA [None]
  - AUTOIMMUNE HEPATITIS [None]
  - BILIARY CIRRHOSIS PRIMARY [None]
  - BILIRUBIN CONJUGATED INCREASED [None]
  - BLOOD BILIRUBIN INCREASED [None]
  - CHROMATURIA [None]
  - COAGULOPATHY [None]
  - FAECES PALE [None]
  - HEPATITIS [None]
  - INSOMNIA [None]
  - INTERNATIONAL NORMALISED RATIO INCREASED [None]
  - JAUNDICE [None]
  - MALAISE [None]
  - NAUSEA [None]
  - OCULAR ICTERUS [None]
  - SKIN DISCOLOURATION [None]
  - VOMITING [None]
